FAERS Safety Report 6310393-6 (Version None)
Quarter: 2009Q3

REPORT INFORMATION
  Report Type: 
  Country: None (occurrence: None)
  Receive Date: 20090811
  Receipt Date: 20090803
  Transmission Date: 20100115
  Serious: Yes (Hospitalization)
  Sender: FDA-Public Use
  Company Number: DSA_40513_2009

PATIENT
  Sex: Female

DRUGS (1)
  1. XENAZINE [Suspect]
     Indication: DYSKINESIA
     Dosage: 12.5 MG BID
     Dates: start: 20090729

REACTIONS (4)
  - ANAPHYLACTIC REACTION [None]
  - FACIAL SPASM [None]
  - TRISMUS [None]
  - URTICARIA [None]
